FAERS Safety Report 6992945-3 (Version None)
Quarter: 2010Q3

REPORT INFORMATION
  Report Type: 
  Country: None (occurrence: None)
  Receive Date: 20100917
  Receipt Date: 20100913
  Transmission Date: 20110219
  Serious: Yes (Death)
  Sender: FDA-Public Use
  Company Number: DE-CELGENEUS-062-21880-10091087

PATIENT
  Age: 44 Year
  Sex: Male
  Weight: 80.7 kg

DRUGS (17)
  1. REVLIMID [Suspect]
     Route: 048
     Dates: start: 20100730, end: 20100809
  2. MEROPENEM [Concomitant]
     Indication: PNEUMONIA
     Route: 065
  3. ZYVOX [Concomitant]
     Indication: PNEUMONIA
     Route: 065
  4. PANTOPRAZOLE SODIUM [Concomitant]
     Indication: PRODUCT USED FOR UNKNOWN INDICATION
     Route: 065
  5. TAVANIC [Concomitant]
     Indication: PRODUCT USED FOR UNKNOWN INDICATION
     Route: 065
  6. VFEND [Concomitant]
     Indication: PRODUCT USED FOR UNKNOWN INDICATION
     Route: 065
  7. ACYCLOVIR [Concomitant]
     Indication: PRODUCT USED FOR UNKNOWN INDICATION
     Route: 065
  8. MAGNESIUM VERLA [Concomitant]
     Indication: PRODUCT USED FOR UNKNOWN INDICATION
     Route: 065
  9. ADVAGRAF [Concomitant]
     Indication: IMMUNOSUPPRESSANT DRUG THERAPY
     Route: 065
  10. XIPAMIDE [Concomitant]
     Indication: PRODUCT USED FOR UNKNOWN INDICATION
     Route: 065
  11. TEPILTA [Concomitant]
     Indication: PRODUCT USED FOR UNKNOWN INDICATION
     Route: 065
  12. AUGMENTIN '125' [Concomitant]
     Indication: PRODUCT USED FOR UNKNOWN INDICATION
     Route: 065
  13. PENTAMIDINE ISETHIONATE [Concomitant]
     Indication: PRODUCT USED FOR UNKNOWN INDICATION
     Route: 055
  14. CLEMASTINE FUMARATE [Concomitant]
     Route: 065
  15. NOVALGIN [Concomitant]
     Indication: PAIN
     Route: 065
  16. TRAMAL [Concomitant]
     Indication: PAIN
     Route: 065
  17. MCP [Concomitant]
     Indication: NAUSEA
     Route: 065

REACTIONS (1)
  - GRAFT VERSUS HOST DISEASE [None]
